FAERS Safety Report 24042040 (Version 1)
Quarter: 2024Q3

REPORT INFORMATION
  Report Type: Report from Study
  Country: US (occurrence: US)
  Receive Date: 20240702
  Receipt Date: 20240702
  Transmission Date: 20241017
  Serious: Yes (Other)
  Sender: MYLAN
  Company Number: US-MYLANLABS-2024M1041239

PATIENT
  Sex: Male
  Weight: 2.02 kg

DRUGS (5)
  1. TENOFOVIR DISOPROXIL FUMARATE [Suspect]
     Active Substance: TENOFOVIR DISOPROXIL FUMARATE
     Indication: HIV infection
     Dosage: 300 MILLIGRAM, QD (DAILY)
     Route: 064
     Dates: start: 20220901
  2. DARUNAVIR [Suspect]
     Active Substance: DARUNAVIR
     Indication: HIV infection
     Dosage: 1200 MILLIGRAM, QD (DAILY)
     Route: 064
     Dates: start: 20210716
  3. DOLUTEGRAVIR [Suspect]
     Active Substance: DOLUTEGRAVIR
     Indication: HIV infection
     Dosage: 500 MILLIGRAM, QD (DAILY)
     Route: 064
     Dates: start: 20220901
  4. DOLUTEGRAVIR [Suspect]
     Active Substance: DOLUTEGRAVIR
     Dosage: 50 MILLIGRAM, QD (DAILY)
     Route: 064
     Dates: start: 20220901
  5. RITONAVIR [Suspect]
     Active Substance: RITONAVIR
     Indication: HIV infection
     Dosage: 200 MILLIGRAM, QD
     Route: 064
     Dates: start: 20170414

REACTIONS (3)
  - Peritoneal cyst [Unknown]
  - Scrotal cyst [Unknown]
  - Foetal exposure during pregnancy [Unknown]
